FAERS Safety Report 8848036 (Version 1)
Quarter: 2012Q4

REPORT INFORMATION
  Report Type: 
  Country: CO (occurrence: CO)
  Receive Date: 20121018
  Receipt Date: 20121018
  Transmission Date: 20130627
  Serious: Yes (Hospitalization)
  Sender: FDA-Public Use
  Company Number: CO-JNJFOC-20121008283

PATIENT
  Age: 42 Year
  Sex: Male

DRUGS (7)
  1. TOPIRAMATE [Suspect]
     Indication: STATUS EPILEPTICUS
     Route: 048
  2. TOPIRAMATE [Suspect]
     Indication: STATUS EPILEPTICUS
     Route: 048
  3. VALPROIC ACID [Interacting]
     Indication: STATUS EPILEPTICUS
     Route: 042
  4. VALPROIC ACID [Interacting]
     Indication: STATUS EPILEPTICUS
     Route: 042
  5. PHENOBARBITAL [Interacting]
     Indication: STATUS EPILEPTICUS
     Route: 065
  6. PHENOBARBITAL [Interacting]
     Indication: STATUS EPILEPTICUS
     Route: 065
  7. LEVETIRACETAM [Concomitant]
     Indication: STATUS EPILEPTICUS
     Route: 065

REACTIONS (2)
  - Hyperammonaemic encephalopathy [Recovering/Resolving]
  - Drug interaction [Recovering/Resolving]
